FAERS Safety Report 25518019 (Version 2)
Quarter: 2025Q3

REPORT INFORMATION
  Report Type: Spontaneous
  Country: EU (occurrence: EU)
  Receive Date: 20250704
  Receipt Date: 20250810
  Transmission Date: 20251020
  Serious: Yes (Other)
  Sender: ALEXION PHARMACEUTICALS
  Company Number: EU-AstraZeneca-CH-00898834A

PATIENT
  Sex: Male

DRUGS (1)
  1. CALQUENCE [Suspect]
     Active Substance: ACALABRUTINIB
     Indication: Chronic lymphocytic leukaemia
     Route: 065
     Dates: start: 202303, end: 202501

REACTIONS (7)
  - Malignant neoplasm progression [Unknown]
  - Lymphadenopathy [Unknown]
  - Secondary immunodeficiency [Unknown]
  - Headache [Unknown]
  - General physical health deterioration [Unknown]
  - Infection [Unknown]
  - Secondary immunodeficiency [Unknown]

NARRATIVE: CASE EVENT DATE: 20230301
